FAERS Safety Report 7141919-0 (Version None)
Quarter: 2010Q4

REPORT INFORMATION
  Report Type: 
  Country: None (occurrence: None)
  Receive Date: 20101117
  Receipt Date: 20100803
  Transmission Date: 20110411
  Serious: No
  Sender: FDA-Public Use
  Company Number: WAES 1008USA00407

PATIENT
  Age: 49 Year
  Sex: Male
  Weight: 75.7507 kg

DRUGS (7)
  1. ISENTRESS [Suspect]
     Indication: HIV INFECTION
     Dosage: 400 MG/BID/PO
     Route: 048
     Dates: start: 20090305, end: 20090501
  2. APTIVUS [Concomitant]
  3. NORVIR [Concomitant]
  4. PRILOSEC [Concomitant]
  5. TRUVADA [Concomitant]
  6. ZANTAC [Concomitant]
  7. ZERIT [Concomitant]

REACTIONS (1)
  - MUSCLE SPASMS [None]
